FAERS Safety Report 9802458 (Version 3)
Quarter: 2014Q1

REPORT INFORMATION
  Report Type: Report from Study
  Country: GB (occurrence: GB)
  Receive Date: 20140107
  Receipt Date: 20140116
  Transmission Date: 20141002
  Serious: Yes (Hospitalization)
  Sender: FDA-Public Use
  Company Number: GB-EXELIXIS-XL18414003847

PATIENT
  Age: 62 Year
  Sex: Male

DRUGS (10)
  1. XL184 [Suspect]
     Indication: PROSTATE CANCER
     Dosage: 60 MG, QD
     Route: 048
     Dates: start: 20130912, end: 2013
  2. XL184 [Suspect]
     Dosage: 40 MG, QD
     Route: 048
     Dates: start: 2013
  3. XL184 [Suspect]
     Indication: PROSTATE CANCER
     Dosage: 5 MG, BID
     Route: 048
     Dates: start: 20130912
  4. METFORMIN [Concomitant]
  5. THYROXINE [Concomitant]
  6. SANDOCAL [Concomitant]
  7. ZOPLICONE [Concomitant]
  8. CODEINE [Concomitant]
  9. NAPROXEN [Concomitant]
  10. LANSOPRAZOLE [Concomitant]

REACTIONS (3)
  - Hypocalcaemia [Not Recovered/Not Resolved]
  - Hypomagnesaemia [Not Recovered/Not Resolved]
  - Metabolic myopathy [Not Recovered/Not Resolved]
